FAERS Safety Report 4386630-4 (Version None)
Quarter: 2004Q2

REPORT INFORMATION
  Report Type: 
  Country: None (occurrence: None)
  Receive Date: 20040623
  Receipt Date: 20040611
  Transmission Date: 20050107
  Serious: Yes (Death, Hospitalization)
  Sender: FDA-Public Use
  Company Number: 163-20785-04050141

PATIENT
  Age: 80 Year
  Sex: Male

DRUGS (1)
  1. THALOMID [Suspect]
     Indication: MULTIPLE MYELOMA
     Dosage: 150 MG, BID, ORAL
     Route: 048
     Dates: start: 20030528, end: 20040101

REACTIONS (11)
  - CARDIAC FAILURE CONGESTIVE [None]
  - CELLULITIS [None]
  - CONGESTIVE CARDIOMYOPATHY [None]
  - HYPOTENSION [None]
  - IMPAIRED HEALING [None]
  - MYOCARDIAL INFARCTION [None]
  - PNEUMONIA ASPIRATION [None]
  - RENAL FAILURE [None]
  - RESPIRATORY FAILURE [None]
  - SEPSIS [None]
  - ULCER [None]
